FAERS Safety Report 9339125 (Version 2)
Quarter: 2013Q4

REPORT INFORMATION
  Report Type: Report from Study
  Country: CA (occurrence: CA)
  Receive Date: 20130610
  Receipt Date: 20131025
  Transmission Date: 20140711
  Serious: Yes (Congenital Anomaly, Other)
  Sender: FDA-Public Use
  Company Number: CA-JNJFOC-20130521120

PATIENT
  Age: 0 Day
  Sex: Female

DRUGS (3)
  1. REMICADE [Suspect]
     Indication: FOETAL EXPOSURE DURING PREGNANCY
     Route: 064
     Dates: end: 20130114
  2. CHAMPIX [Suspect]
     Indication: FOETAL EXPOSURE DURING PREGNANCY
     Route: 064
  3. ANTIBIOTIC UNSPECIFIED [Suspect]
     Indication: FOETAL EXPOSURE DURING PREGNANCY
     Dosage: 7 DAY COURSE
     Route: 064

REACTIONS (6)
  - Anal fistula [Not Recovered/Not Resolved]
  - Convulsion [Unknown]
  - Anterior displaced anus [Not Recovered/Not Resolved]
  - Umbilical hernia [Not Recovered/Not Resolved]
  - Renal aplasia [Unknown]
  - Female genital tract fistula [Unknown]
